FAERS Safety Report 14311627 (Version 1)
Quarter: 2017Q4

REPORT INFORMATION
  Report Type: Report from Study
  Country: None (occurrence: US)
  Receive Date: 20171221
  Receipt Date: 20171221
  Transmission Date: 20180321
  Serious: Yes (Hospitalization)
  Sender: FDA-Public Use
  Company Number: US-ABBVIE-17K-163-2143402-00

PATIENT
  Age: 70 Year
  Sex: Female

DRUGS (6)
  1. AMLODIPINE AND BENAZEPRIL [Concomitant]
     Active Substance: AMLODIPINE BESYLATE\BENAZEPRIL HYDROCHLORIDE
     Indication: HYPERTENSION
  2. METOPROLOL. [Concomitant]
     Active Substance: METOPROLOL
     Indication: HYPERTENSION
  3. HUMIRA [Suspect]
     Active Substance: ADALIMUMAB
     Indication: RHEUMATOID ARTHRITIS
     Route: 058
     Dates: start: 2007, end: 201710
  4. SIMVASTATIN. [Concomitant]
     Active Substance: SIMVASTATIN
     Indication: BLOOD CHOLESTEROL INCREASED
  5. HUMIRA [Suspect]
     Active Substance: ADALIMUMAB
     Route: 058
     Dates: start: 201711
  6. FISH OIL [Concomitant]
     Active Substance: FISH OIL
     Indication: VITAMIN SUPPLEMENTATION

REACTIONS (2)
  - Pneumonia aspiration [Recovering/Resolving]
  - Vomiting [Recovered/Resolved]

NARRATIVE: CASE EVENT DATE: 201710
